FAERS Safety Report 7334524-4 (Version None)
Quarter: 2011Q1

REPORT INFORMATION
  Report Type: 
  Country: None (occurrence: None)
  Receive Date: 20110307
  Receipt Date: 20110222
  Transmission Date: 20110831
  Serious: Yes (Hospitalization)
  Sender: FDA-Public Use
  Company Number: DE-ELI_LILLY_AND_COMPANY-DE201102005844

PATIENT
  Sex: Female

DRUGS (1)
  1. CYMBALTA [Suspect]
     Route: 048

REACTIONS (3)
  - DRUG ABUSE [None]
  - FATIGUE [None]
  - DRUG LEVEL INCREASED [None]
